FAERS Safety Report 6182562-X (Version None)
Quarter: 2009Q2

REPORT INFORMATION
  Report Type: 
  Country: None (occurrence: None)
  Receive Date: 20090507
  Receipt Date: 20090423
  Transmission Date: 20091009
  Serious: Yes (Hospitalization)
  Sender: FDA-Public Use
  Company Number: FR-PFIZER INC-2009208703

PATIENT

DRUGS (7)
  1. ATARAX [Suspect]
     Indication: ANXIETY
     Dosage: 25 MG, UNK
     Route: 048
  2. ENALAPRIL MALEATE [Suspect]
     Indication: HYPERTENSION
     Dosage: 2.5 MG, 1X/DAY
     Route: 048
     Dates: end: 20090320
  3. AMIODARONE [Suspect]
     Indication: ATRIAL FIBRILLATION
     Dosage: 200 MG, UNK
     Route: 048
  4. FUROSEMIDE [Suspect]
     Indication: HYPERTENSION
     Dosage: 40 MG, UNK
     Route: 048
  5. SERETIDE DISKUS [Suspect]
     Indication: BRONCHOPNEUMOPATHY
     Dosage: 2 DF, UNK
  6. LEVOTHYROX [Suspect]
     Indication: THYROID DISORDER
     Dosage: 25 MCG, UNK
     Route: 048
  7. PREVISCAN [Suspect]
     Indication: ATRIAL FIBRILLATION
     Dosage: 5 MG, UNK
     Route: 048

REACTIONS (3)
  - ERYTHEMA [None]
  - OEDEMA PERIPHERAL [None]
  - RASH [None]
